FAERS Safety Report 14589990 (Version 2)
Quarter: 2018Q1

REPORT INFORMATION
  Report Type: Report from Study
  Country: DE (occurrence: DE)
  Receive Date: 20180302
  Receipt Date: 20180315
  Transmission Date: 20180509
  Serious: Yes (Other)
  Sender: FDA-Public Use
  Company Number: DE-ADIENNEP-2018AD000112

PATIENT
  Sex: Female
  Weight: 90 kg

DRUGS (4)
  1. CYTARABINE. [Concomitant]
     Active Substance: CYTARABINE
     Indication: BONE MARROW CONDITIONING REGIMEN
     Dosage: 400 MG/M2
  2. ETOPOSIDE. [Concomitant]
     Active Substance: ETOPOSIDE
     Indication: BONE MARROW CONDITIONING REGIMEN
     Dosage: 200 MG/M2
  3. MELPHALAN. [Concomitant]
     Active Substance: MELPHALAN
     Indication: BONE MARROW CONDITIONING REGIMEN
     Dosage: 40 MG/M2
  4. TEPADINA [Suspect]
     Active Substance: THIOTEPA
     Indication: BONE MARROW CONDITIONING REGIMEN
     Dosage: 10 MG/KG
     Route: 042
     Dates: start: 20161115

REACTIONS (10)
  - Restless legs syndrome [Not Recovered/Not Resolved]
  - Thrombocytopenia [Recovered/Resolved]
  - Peripheral sensory neuropathy [Not Recovered/Not Resolved]
  - Leukopenia [Recovered/Resolved]
  - Stomatitis [Recovered/Resolved]
  - Leukopenia [Recovered/Resolved]
  - Diarrhoea [Recovered/Resolved]
  - Neutropenia [Recovered/Resolved]
  - Gastroenteritis [Recovered/Resolved]
  - Peripheral motor neuropathy [Not Recovered/Not Resolved]

NARRATIVE: CASE EVENT DATE: 20161117
